FAERS Safety Report 9553120 (Version 1)
Quarter: 2013Q3

REPORT INFORMATION
  Report Type: Spontaneous
  Country: US (occurrence: None)
  Receive Date: 20130724
  Receipt Date: 20130724
  Transmission Date: 20140515
  Serious: Yes (Other)
  Sender: FDA-Public Use
  Company Number: PHEH2012US019290

PATIENT
  Age: 78 Year
  Sex: Male

DRUGS (8)
  1. GLEEVEC [Suspect]
     Indication: CHRONIC MYELOID LEUKAEMIA
     Route: 048
     Dates: start: 20120831
  2. FISH OIL (FISH OIL) [Concomitant]
  3. VITAMIN D (ERGOCALCIFEROL) [Concomitant]
  4. CENTRUM (MINERALS NOS, VITAMINS NOS) [Concomitant]
  5. LUTEIN (XANTOFYL) [Concomitant]
  6. GLUCOSAMINE (GLUCOSAMINE) [Concomitant]
  7. DOXEPIN (DOXEPIN) (DOXEPIN) [Concomitant]
  8. LIPITOR (ATORVASTATIN CALCIUM) [Concomitant]

REACTIONS (2)
  - Rash [None]
  - Pyrexia [None]
